FAERS Safety Report 4765964-5 (Version None)
Quarter: 2005Q3

REPORT INFORMATION
  Report Type: 
  Country: None (occurrence: None)
  Receive Date: 20050912
  Receipt Date: 20050726
  Transmission Date: 20060218
  Serious: Yes (Hospitalization, Other)
  Sender: FDA-Public Use
  Company Number: PHBS2005JP10888

PATIENT
  Age: 78 Year
  Sex: Male

DRUGS (5)
  1. DIOVAN [Suspect]
     Indication: HYPERTENSION
     Dosage: 80 MG/DAY
     Route: 048
  2. LASIX [Suspect]
     Dosage: UNK, UNK
     Route: 048
     Dates: end: 20050613
  3. ALDACTONE [Concomitant]
     Dosage: 25 MG/DAY
     Route: 048
     Dates: start: 20050613
  4. ALLOPURINOL [Concomitant]
     Dosage: 100 MG/DAY
     Route: 048
     Dates: start: 20050613
  5. HARNAL [Concomitant]
     Dosage: 0.2 MG/DAY
     Route: 048
     Dates: start: 20050613

REACTIONS (3)
  - BLOOD POTASSIUM DECREASED [None]
  - CARDIAC FAILURE [None]
  - OEDEMA [None]
